FAERS Safety Report 18248403 (Version 4)
Quarter: 2020Q4

REPORT INFORMATION
  Report Type: Report from Study
  Country: FR (occurrence: FR)
  Receive Date: 20200909
  Receipt Date: 20201210
  Transmission Date: 20210113
  Serious: Yes (Death, Hospitalization, Other)
  Sender: FDA-Public Use
  Company Number: FR-BRISTOL-MYERS SQUIBB COMPANY-BMS-2020-052023

PATIENT
  Age: 78 Year
  Sex: Male
  Weight: 101 kg

DRUGS (44)
  1. NIVOLUMAB [Suspect]
     Active Substance: NIVOLUMAB
     Indication: MALIGNANT MELANOMA
     Dosage: 300 UNSPECIFIED DOSE, Q2WK
     Route: 065
     Dates: start: 20180530, end: 20180919
  2. NIVOLUMAB [Suspect]
     Active Substance: NIVOLUMAB
     Dosage: 240 UNSPECIFIED DOSE, Q2WK
     Route: 065
     Dates: start: 20200630, end: 20200713
  3. LEVOTHYROX [Concomitant]
     Active Substance: LEVOTHYROXINE
     Dosage: 125 MICROGRAM, QD
     Route: 048
     Dates: start: 20181109, end: 20181127
  4. MOVICOL [Concomitant]
     Active Substance: POLYETHYLENE GLYCOL 3350\POTASSIUM CHLORIDE\SODIUM BICARBONATE\SODIUM CHLORIDE
     Indication: CONSTIPATION
     Dosage: 2 BAG, QD
     Route: 048
  5. AUGMENTIN [Concomitant]
     Active Substance: AMOXICILLIN\CLAVULANATE POTASSIUM
     Indication: BRONCHITIS
     Dosage: 1 GRAM, TID
     Route: 048
     Dates: start: 20200625, end: 20200630
  6. DIPROSONE [BETAMETHASONE SODIUM PHOSPHATE] [Concomitant]
     Indication: PRODUCT USED FOR UNKNOWN INDICATION
     Dosage: 1 APPLICATION, QD
     Route: 061
     Dates: start: 20180711
  7. MICROLAX [MACROGOL;SODIUM CITRATE;SODIUM LAURYL SULFATE;SORBIC ACID] [Concomitant]
     Indication: CONSTIPATION
     Dosage: 1 PER NEEDED
     Route: 048
     Dates: start: 20190807
  8. SOLUPRED [PREDNISOLONE] [Concomitant]
     Active Substance: PREDNISOLONE
     Dosage: 8 MILLIGRAM, BID
     Dates: start: 20200617
  9. SALBUTAMOL [Concomitant]
     Active Substance: ALBUTEROL
     Indication: BRONCHITIS
     Dosage: 3 ABSENT
     Route: 048
     Dates: start: 20200713, end: 20200719
  10. NIVOLUMAB [Suspect]
     Active Substance: NIVOLUMAB
     Indication: LUNG NEOPLASM MALIGNANT
     Dosage: 310 UNSPECIFIED DOSE, Q2WK
     Route: 065
     Dates: start: 20181004, end: 20190206
  11. NIVOLUMAB [Suspect]
     Active Substance: NIVOLUMAB
     Dosage: 300 UNSPECIFIED DOSE, Q2WK
     Route: 065
     Dates: start: 20190220, end: 20190220
  12. LEVOTHYROX [Concomitant]
     Active Substance: LEVOTHYROXINE
     Indication: PRODUCT USED FOR UNKNOWN INDICATION
     Dosage: 50 MICROGRAM, QD
     Route: 048
     Dates: start: 20180919, end: 20181016
  13. EXACYL [Concomitant]
     Active Substance: TRANEXAMIC ACID
     Dosage: 1 VAIL, TID
     Dates: start: 20190501, end: 20190501
  14. AUGMENTIN [Concomitant]
     Active Substance: AMOXICILLIN\CLAVULANATE POTASSIUM
     Indication: PROPHYLAXIS
     Dosage: 1 GRAM, TID
     Route: 048
     Dates: start: 20200713, end: 20200719
  15. LEVOTHYROX [Concomitant]
     Active Substance: LEVOTHYROXINE
     Dosage: 75 MICROGRAM, QD
     Route: 048
     Dates: start: 20181017, end: 20181030
  16. LEVOTHYROX [Concomitant]
     Active Substance: LEVOTHYROXINE
     Dosage: 100 MICROGRAM, QD
     Route: 048
     Dates: start: 20181031, end: 20181108
  17. LEVOTHYROX [Concomitant]
     Active Substance: LEVOTHYROXINE
     Dosage: 120 MICROGRAM, QD
     Route: 048
     Dates: start: 20200602
  18. DEXERYL [GLYCEROL;PARAFFIN, LIQUID;WHITE SOFT PARAFFIN] [Concomitant]
     Active Substance: GLYCERIN\MINERAL OIL\PETROLATUM
     Indication: PRODUCT USED FOR UNKNOWN INDICATION
     Dosage: 1 APPLICATION, QD
     Route: 061
     Dates: start: 20181004
  19. KARDEGIC [Concomitant]
     Active Substance: ASPIRIN DL-LYSINE
     Indication: PRODUCT USED FOR UNKNOWN INDICATION
     Dosage: 75 MILLIGRAM, QD
     Route: 048
     Dates: start: 2016
  20. INNOHEP [Concomitant]
     Active Substance: TINZAPARIN SODIUM
     Indication: PULMONARY VENOUS THROMBOSIS
     Dosage: 18000 INTERNATIONAL UNIT, QD
     Route: 058
     Dates: start: 20190507
  21. DECTANCYL [Concomitant]
     Active Substance: DEXAMETHASONE
     Indication: NAUSEA
     Dosage: 0.5 MILLIGRAM, BID
     Route: 048
     Dates: start: 20200518
  22. DECTANCYL [Concomitant]
     Active Substance: DEXAMETHASONE
     Indication: VOMITING
  23. NIVOLUMAB [Suspect]
     Active Substance: NIVOLUMAB
     Dosage: 300 UNSPECIFIED DOSE, Q2WK
     Route: 065
     Dates: start: 20190403, end: 20190417
  24. NIVOLUMAB [Suspect]
     Active Substance: NIVOLUMAB
     Dosage: 290 UNSPECIFIED DOSE, Q2WK
     Route: 065
     Dates: start: 20190510, end: 20190611
  25. NIVOLUMAB [Suspect]
     Active Substance: NIVOLUMAB
     Dosage: 270 UNSPECIFIED DOSE, Q2WK
     Route: 065
     Dates: start: 20190724, end: 20190807
  26. NIVOLUMAB [Suspect]
     Active Substance: NIVOLUMAB
     Dosage: 310 UNSPECIFIED DOSE, Q2WK
     Route: 065
     Dates: start: 20190306, end: 20190306
  27. NIVOLUMAB [Suspect]
     Active Substance: NIVOLUMAB
     Dosage: 280 UNSPECIFIED DOSE, Q2WK
     Dates: start: 20190710, end: 20190710
  28. NIVOLUMAB [Suspect]
     Active Substance: NIVOLUMAB
     Dosage: 480 UNSPECIFIED DOSE, QMO
     Route: 065
     Dates: start: 20190918, end: 20190918
  29. FAZOL [ISOCONAZOLE NITRATE] [Concomitant]
     Indication: PSORIASIS
     Dosage: 1 APPLICATION, BID
     Route: 061
     Dates: start: 20180530, end: 20180630
  30. GLUCOPHAGE [Concomitant]
     Active Substance: METFORMIN HYDROCHLORIDE
     Indication: PRODUCT USED FOR UNKNOWN INDICATION
     Dosage: 500 MILLIGRAM, BID
     Route: 048
     Dates: start: 2016
  31. CACIT D3 [Concomitant]
     Active Substance: CALCIUM\CHOLECALCIFEROL
     Indication: PRODUCT USED FOR UNKNOWN INDICATION
     Dosage: 100 MILLIGRAM, QD
     Route: 048
     Dates: start: 20191121
  32. XATRAL [Concomitant]
     Active Substance: ALFUZOSIN
     Indication: PRODUCT USED FOR UNKNOWN INDICATION
     Dosage: 10 MILLIGRAM
     Route: 048
     Dates: start: 20200617
  33. IPRATROPIUM [Concomitant]
     Active Substance: IPRATROPIUM
     Indication: BRONCHITIS
     Dosage: 3 ABSENT, QD
     Route: 048
     Dates: start: 20200713, end: 20200719
  34. NIVOLUMAB [Suspect]
     Active Substance: NIVOLUMAB
     Dosage: 300 UNSPECIFIED DOSE, Q2WK
     Route: 065
     Dates: start: 20190626, end: 20190626
  35. NIVOLUMAB [Suspect]
     Active Substance: NIVOLUMAB
     Dosage: 260 UNSPECIFIED DOSE, Q2WK
     Route: 065
     Dates: start: 20190821, end: 20190904
  36. NIVOLUMAB [Suspect]
     Active Substance: NIVOLUMAB
     Dosage: 220 UNSPECIFIED DOSE, Q3WK
     Dates: start: 20200616, end: 20200616
  37. LEVOTHYROX [Concomitant]
     Active Substance: LEVOTHYROXINE
     Dosage: 150 MICROGRAM, QD
     Route: 048
     Dates: start: 20181128, end: 20190820
  38. SOLUPRED [PREDNISOLONE] [Concomitant]
     Active Substance: PREDNISOLONE
     Indication: IMMUNE SYSTEM DISORDER
     Dosage: 10 MILLIGRAM, QD
     Route: 048
     Dates: start: 20200528
  39. NIVOLUMAB [Suspect]
     Active Substance: NIVOLUMAB
     Dosage: 240 UNSPECIFIED DOSE, Q3WK
     Dates: start: 20200602, end: 20200602
  40. EXACYL [Concomitant]
     Active Substance: TRANEXAMIC ACID
     Indication: HAEMOPTYSIS
     Dosage: 1 VAIL, TID
     Route: 048
     Dates: start: 20180613, end: 20180613
  41. AERIUS (DESLORATADINE) [Concomitant]
     Active Substance: DESLORATADINE
     Indication: PRODUCT USED FOR UNKNOWN INDICATION
     Dosage: 5 MILLIGRAM, PER NEEDED
     Route: 048
     Dates: start: 20180711
  42. CLOBEX [CLOBETASOL PROPIONATE] [Concomitant]
     Indication: PRODUCT USED FOR UNKNOWN INDICATION
     Dosage: 1 PER NEEDED
     Route: 061
     Dates: start: 20190212
  43. DELURSAN [Concomitant]
     Active Substance: URSODIOL
     Indication: PRODUCT USED FOR UNKNOWN INDICATION
     Dosage: 500 MILLIGRAM, BID
     Route: 048
  44. SOLUPRED [PREDNISOLONE] [Concomitant]
     Active Substance: PREDNISOLONE
     Dosage: 10 MILLIGRAM
     Route: 048
     Dates: start: 20200528, end: 202006

REACTIONS (2)
  - Off label use [Unknown]
  - Pneumonitis [Recovered/Resolved]

NARRATIVE: CASE EVENT DATE: 20200623
